FAERS Safety Report 17981537 (Version 1)
Quarter: 2020Q3

REPORT INFORMATION
  Report Type: Spontaneous
  Country: GB (occurrence: GB)
  Receive Date: 20200706
  Receipt Date: 20200706
  Transmission Date: 20201103
  Serious: Yes (Life-Threatening, Hospitalization)
  Sender: FDA-Public Use
  Company Number: GB-ROCHE-2635100

PATIENT
  Age: 63 Year
  Sex: Female
  Weight: 72 kg

DRUGS (7)
  1. SANDO K [POTASSIUM BICARBONATE;POTASSIUM CHLORIDE] [Concomitant]
     Active Substance: POTASSIUM BICARBONATE\POTASSIUM CHLORIDE
     Indication: ELECTROLYTE SUBSTITUTION THERAPY
     Route: 048
  2. LOPERAMIDE HYDROCHLORIDE. [Concomitant]
     Active Substance: LOPERAMIDE HYDROCHLORIDE
  3. METOCLOPRAMIDE. [Concomitant]
     Active Substance: METOCLOPRAMIDE
  4. CAPECITABINE ACCORD [Suspect]
     Active Substance: CAPECITABINE
     Indication: COLORECTAL ADENOCARCINOMA
     Dosage: FOR 14 DAYS (CYCLE 2)
     Route: 048
     Dates: start: 20200331, end: 20200413
  5. CAPECITABINE. [Suspect]
     Active Substance: CAPECITABINE
     Indication: COLORECTAL ADENOCARCINOMA
     Dosage: FOR 14 DAYS (CYCLE 2)
     Route: 048
     Dates: start: 20200331, end: 20200413
  6. CAPECITABINE. [Suspect]
     Active Substance: CAPECITABINE
     Indication: COLORECTAL ADENOCARCINOMA
     Dosage: CYCLE 1
     Route: 048
     Dates: start: 20200309
  7. CYCLIZINE HYDROCHLORIDE [Concomitant]
     Active Substance: CYCLIZINE HYDROCHLORIDE

REACTIONS (12)
  - Nausea [Recovering/Resolving]
  - Hypophagia [Recovering/Resolving]
  - Vomiting [Unknown]
  - Pyrexia [Unknown]
  - Lethargy [Unknown]
  - Mobility decreased [Recovering/Resolving]
  - Pulmonary embolism [Unknown]
  - Intestinal obstruction [Unknown]
  - Fatigue [Recovering/Resolving]
  - Diarrhoea [Recovering/Resolving]
  - Ileus [Recovered/Resolved]
  - Mucosal inflammation [Unknown]

NARRATIVE: CASE EVENT DATE: 202004
